FAERS Safety Report 9403805 (Version 2)
Quarter: 2013Q3

REPORT INFORMATION
  Report Type: Spontaneous
  Country: FR (occurrence: None)
  Receive Date: 20130712
  Receipt Date: 20130718
  Transmission Date: 20140515
  Serious: Yes (Hospitalization, Disabling)
  Sender: FDA-Public Use
  Company Number: ACO_37250_2013

PATIENT
  Age: 54 Year
  Sex: Female

DRUGS (5)
  1. FAMPYRA [Suspect]
     Indication: GAIT DISTURBANCE
     Route: 048
     Dates: start: 20130612, end: 20130614
  2. LIORESAL (BACLOFEN) [Concomitant]
  3. TRAMADOL (TRAMADOL HYDROCHLORIDE) [Concomitant]
  4. MAGNESIUM (MAGNESIUM) [Concomitant]
  5. BETAFERON (INTERFERON BETA-1B) [Concomitant]

REACTIONS (5)
  - Joint dislocation [None]
  - Hypotonia [None]
  - Neutropenia [None]
  - Cognitive disorder [None]
  - Multiple sclerosis relapse [None]
